FAERS Safety Report 17209249 (Version 1)
Quarter: 2019Q4

REPORT INFORMATION
  Report Type: Spontaneous
  Country: SE (occurrence: SE)
  Receive Date: 20191227
  Receipt Date: 20191227
  Transmission Date: 20200122
  Serious: Yes (Hospitalization)
  Sender: FDA-Public Use
  Company Number: SE-MYLANLABS-2019M1128780

PATIENT
  Sex: Female

DRUGS (1)
  1. LERGIGAN MITE [PROMETHAZINE HYDROCHLORIDE] [Suspect]
     Active Substance: PROMETHAZINE HYDROCHLORIDE
     Indication: ANXIETY
     Dosage: ^ORDIN LERGIGAN MITE 5 MG 10 ST/G?NG MAX 2 GGR/DYGN^ TAGIT 125 MG, EV MER
     Route: 048
     Dates: start: 20180610, end: 20180610

REACTIONS (4)
  - Abdominal pain [Unknown]
  - Nausea [Unknown]
  - Somnolence [Unknown]
  - Intentional overdose [Unknown]

NARRATIVE: CASE EVENT DATE: 20180610
